FAERS Safety Report 20737507 (Version 2)
Quarter: 2022Q2

REPORT INFORMATION
  Report Type: Spontaneous
  Country: US (occurrence: None)
  Receive Date: 20220422
  Receipt Date: 20220602
  Transmission Date: 20220721
  Serious: No
  Sender: FDA-Public Use
  Company Number: 2022A149912

PATIENT
  Sex: Male

DRUGS (1)
  1. SYMBICORT [Suspect]
     Active Substance: BUDESONIDE\FORMOTEROL FUMARATE DIHYDRATE
     Indication: Respiratory disorder
     Dosage: 160/4.5MCG, UNKNOWN160.0UG UNKNOWN
     Route: 055

REACTIONS (7)
  - Respiration abnormal [Unknown]
  - Weight abnormal [Unknown]
  - Body height decreased [Unknown]
  - Throat irritation [Unknown]
  - Device effect variable [Unknown]
  - Off label use [Unknown]
  - Device malfunction [Unknown]
